FAERS Safety Report 8343939-7 (Version None)
Quarter: 2012Q2

REPORT INFORMATION
  Report Type: 
  Country: None (occurrence: None)
  Receive Date: 20120508
  Receipt Date: 20101029
  Transmission Date: 20120825
  Serious: No
  Sender: FDA-Public Use
  Company Number: US-TEVA-2010005385

PATIENT
  Sex: Female
  Weight: 61.744 kg

DRUGS (1)
  1. TREANDA [Suspect]
     Indication: LYMPHOMA
     Route: 042
     Dates: start: 20100601

REACTIONS (2)
  - WHITE BLOOD CELL COUNT DECREASED [None]
  - TREMOR [None]
